FAERS Safety Report 22366208 (Version 1)
Quarter: 2023Q2

REPORT INFORMATION
  Report Type: Spontaneous
  Country: US (occurrence: None)
  Receive Date: 20230524
  Receipt Date: 20230524
  Transmission Date: 20230721
  Serious: No
  Sender: FDA-Public Use
  Company Number: None

PATIENT
  Age: 42 Year
  Sex: Male
  Weight: 92.25 kg

DRUGS (11)
  1. ACETAZOLAMIDE [Suspect]
     Active Substance: ACETAZOLAMIDE
     Indication: Mass
     Dosage: FREQUENCY : TWICE A DAY;?
     Route: 048
     Dates: start: 20230301, end: 20230515
  2. ACETAZOLAMIDE [Concomitant]
     Active Substance: ACETAZOLAMIDE
  3. FAMOTIDINE [Concomitant]
     Active Substance: FAMOTIDINE
  4. PINDOLOL [Concomitant]
     Active Substance: PINDOLOL
  5. MIDODRINE [Concomitant]
     Active Substance: MIDODRINE
  6. Adderall (temporarily switched to alternatives) [Concomitant]
  7. Hydroxyzine (infrequent) [Concomitant]
  8. COENZYME Q10 [Concomitant]
     Active Substance: DIETARY SUPPLEMENT\UBIDECARENONE
  9. PROBIOTICS NOS [Concomitant]
     Active Substance: PROBIOTICS NOS
  10. LUTEIN [Concomitant]
     Active Substance: LUTEIN
  11. FISH OIL [Concomitant]
     Active Substance: FISH OIL

REACTIONS (2)
  - Product substitution issue [None]
  - Malaise [None]

NARRATIVE: CASE EVENT DATE: 20230301
